FAERS Safety Report 19091434 (Version 1)
Quarter: 2021Q2

REPORT INFORMATION
  Report Type: Spontaneous
  Country: US (occurrence: US)
  Receive Date: 20210405
  Receipt Date: 20210405
  Transmission Date: 20210717
  Serious: No
  Sender: FDA-Public Use
  Company Number: US-DRREDDYS-USA/USA/21/0133302

PATIENT
  Age: 20 Year
  Sex: Female

DRUGS (1)
  1. ZENATANE [Suspect]
     Active Substance: ISOTRETINOIN
     Indication: PRODUCT USED FOR UNKNOWN INDICATION
     Dosage: 11/23/2020 9:30:36 AM,12/21/2020 3:02:48 PM,1/26/2021 1:20:50 PM,2/18/2021 2:43:23 PM
     Route: 048

REACTIONS (1)
  - Therapy cessation [Unknown]
